FAERS Safety Report 25352080 (Version 1)
Quarter: 2025Q2

REPORT INFORMATION
  Report Type: Spontaneous
  Country: US (occurrence: US)
  Receive Date: 20250523
  Receipt Date: 20250523
  Transmission Date: 20250716
  Serious: No
  Sender: ABBVIE
  Company Number: US-ABBVIE-6286262

PATIENT
  Age: 43 Year
  Sex: Female

DRUGS (2)
  1. BOTOX COSMETIC [Suspect]
     Active Substance: ONABOTULINUMTOXINA
     Indication: Skin wrinkling
     Route: 030
     Dates: start: 20250513, end: 20250513
  2. BOTOX COSMETIC [Suspect]
     Active Substance: ONABOTULINUMTOXINA
     Indication: Skin wrinkling
     Route: 065
     Dates: start: 2024, end: 2024

REACTIONS (7)
  - Abdominal discomfort [Unknown]
  - Dizziness [Unknown]
  - Presyncope [Unknown]
  - Somnolence [Unknown]
  - Syncope [Recovered/Resolved]
  - Nausea [Unknown]
  - Vomiting [Unknown]

NARRATIVE: CASE EVENT DATE: 20250513
